FAERS Safety Report 8203212-4 (Version None)
Quarter: 2012Q1

REPORT INFORMATION
  Report Type: 
  Country: None (occurrence: None)
  Receive Date: 20120312
  Receipt Date: 20120302
  Transmission Date: 20120608
  Serious: Yes (Life-Threatening, Hospitalization, Other)
  Sender: FDA-Public Use
  Company Number: JP-ROCHE-1034847

PATIENT
  Sex: Female
  Weight: 27 kg

DRUGS (14)
  1. ACTEMRA [Suspect]
     Route: 041
     Dates: start: 20080710, end: 20080710
  2. ACTEMRA [Suspect]
     Route: 041
     Dates: start: 20080731, end: 20080731
  3. ACTEMRA [Suspect]
     Route: 041
     Dates: start: 20081110
  4. ACTEMRA [Suspect]
     Indication: JUVENILE ARTHRITIS
     Route: 041
     Dates: start: 20070828
  5. CYCLOSPORINE [Suspect]
     Indication: JUVENILE ARTHRITIS
     Route: 048
     Dates: end: 20120105
  6. COLCHICINE [Concomitant]
     Indication: JUVENILE ARTHRITIS
     Route: 048
     Dates: start: 20110414
  7. ACTEMRA [Suspect]
     Route: 041
     Dates: start: 20080911, end: 20081023
  8. ALLEGRA [Concomitant]
     Indication: PRURITUS
     Route: 048
  9. PREDNISOLONE [Concomitant]
     Indication: JUVENILE ARTHRITIS
     Route: 048
  10. ACTEMRA [Suspect]
     Route: 041
     Dates: start: 20080821, end: 20080821
  11. ACTEMRA [Suspect]
     Route: 041
  12. ENALAPRIL MALEATE [Concomitant]
     Indication: HYPERTENSION
     Route: 048
  13. FAMOTIDINE [Concomitant]
     Indication: PROPHYLAXIS AGAINST GASTROINTESTINAL ULCER
     Route: 048
  14. ACTONEL [Concomitant]
     Indication: OSTEOPOROSIS
     Route: 048

REACTIONS (3)
  - HISTIOCYTOSIS HAEMATOPHAGIC [None]
  - PNEUMONIA [None]
  - INTERSTITIAL LUNG DISEASE [None]
